FAERS Safety Report 20813903 (Version 1)
Quarter: 2022Q2

REPORT INFORMATION
  Report Type: Spontaneous
  Country: US (occurrence: None)
  Receive Date: 20220510
  Receipt Date: 20220510
  Transmission Date: 20220720
  Serious: Yes (Hospitalization)
  Sender: FDA-Public Use
  Company Number: None

PATIENT
  Age: 69 Year
  Sex: Male
  Weight: 52.65 kg

DRUGS (5)
  1. RIFAPENTINE [Suspect]
     Active Substance: RIFAPENTINE
     Indication: Latent tuberculosis
     Dosage: OTHER FREQUENCY : WEEKLY;?
     Route: 048
     Dates: start: 20220311, end: 20220326
  2. aripiprazole 400 mg IM Q4weeks [Concomitant]
     Dates: start: 20190924
  3. tiotropium 18 mcg po [Concomitant]
     Dates: start: 20220309
  4. loratadine 10 mg po Qday [Concomitant]
     Dates: start: 20150729
  5. quetiapine 300 mg po QHS [Concomitant]
     Dates: start: 20220209

REACTIONS (1)
  - Chronic obstructive pulmonary disease [None]

NARRATIVE: CASE EVENT DATE: 20220325
